FAERS Safety Report 7793847-5 (Version None)
Quarter: 2011Q4

REPORT INFORMATION
  Report Type: 
  Country: None (occurrence: None)
  Receive Date: 20111004
  Receipt Date: 20110926
  Transmission Date: 20120403
  Serious: Yes (Hospitalization)
  Sender: FDA-Public Use
  Company Number: GB-BIOGENIDEC-2011BI025832

PATIENT
  Age: 39 Year
  Sex: Female
  Weight: 69 kg

DRUGS (4)
  1. FLUOXETINE [Concomitant]
  2. FLUDROCORTISONE ACETATE [Concomitant]
  3. TYSABRI [Suspect]
     Indication: RELAPSING-REMITTING MULTIPLE SCLEROSIS
     Route: 042
     Dates: start: 20100712
  4. GABAPENTIN [Concomitant]

REACTIONS (3)
  - FALL [None]
  - SYNCOPE [None]
  - RADIUS FRACTURE [None]
